FAERS Safety Report 4507632-0 (Version None)
Quarter: 2004Q3

REPORT INFORMATION
  Report Type: 
  Country: None (occurrence: None)
  Receive Date: 20040928
  Receipt Date: 20040802
  Transmission Date: 20050211
  Serious: Yes (Hospitalization)
  Sender: FDA-Public Use
  Company Number: 04P-163-0268894-00

PATIENT
  Age: 50 Year
  Sex: Female
  Weight: 70.7611 kg

DRUGS (8)
  1. HUMIRA [Suspect]
     Indication: RHEUMATOID ARTHRITIS
     Dosage: 40 MG, 1 IN 2 WK, SUBCUTANEOUS
     Route: 058
     Dates: start: 20030801, end: 20040401
  2. METHOTREXATE [Concomitant]
  3. PREDNISONE [Concomitant]
  4. SALBUTAMOL [Concomitant]
  5. ACCULAR [Concomitant]
  6. TRIAMTERENE [Concomitant]
  7. SERETIDE MITE [Concomitant]
  8. POTASSIUM [Concomitant]

REACTIONS (1)
  - PULMONARY COCCIDIOIDES [None]
